FAERS Safety Report 13749058 (Version 1)
Quarter: 2017Q3

REPORT INFORMATION
  Report Type: Spontaneous
  Country: FR (occurrence: FR)
  Receive Date: 20170713
  Receipt Date: 20170713
  Transmission Date: 20171127
  Serious: Yes (Hospitalization)
  Sender: FDA-Public Use
  Company Number: FR-PFIZER INC-2017302763

PATIENT
  Age: 51 Year
  Sex: Female

DRUGS (9)
  1. OFLOCET [Suspect]
     Active Substance: OFLOXACIN
     Indication: ANTIBIOTIC THERAPY
     Dosage: UNK
     Route: 048
     Dates: start: 20150614, end: 20150707
  2. ARIXTRA [Concomitant]
     Active Substance: FONDAPARINUX SODIUM
     Dosage: UNK
     Dates: start: 201507
  3. PARACETAMOL [Suspect]
     Active Substance: ACETAMINOPHEN
     Indication: PAIN
     Dosage: UNK
     Route: 048
  4. FLAGYL [Suspect]
     Active Substance: METRONIDAZOLE\METRONIDAZOLE HYDROCHLORIDE
     Indication: ANTIBIOTIC THERAPY
     Dosage: UNK
     Route: 048
     Dates: start: 20150616
  5. PANTOPRAZOLE [Suspect]
     Active Substance: PANTOPRAZOLE
     Indication: GASTROOESOPHAGEAL REFLUX PROPHYLAXIS
     Dosage: UNK
     Route: 048
  6. AUGMENTIN [Suspect]
     Active Substance: AMOXICILLIN\CLAVULANATE POTASSIUM
     Indication: ANTIBIOTIC THERAPY
     Dosage: UNK
     Route: 048
     Dates: start: 20150614
  7. LOVENOX [Suspect]
     Active Substance: ENOXAPARIN SODIUM
     Indication: THROMBOSIS PROPHYLAXIS
     Dosage: UNK
     Route: 058
     Dates: start: 20150616, end: 20150707
  8. ACUPAN [Suspect]
     Active Substance: NEFOPAM HYDROCHLORIDE
     Indication: PAIN
     Dosage: UNK
  9. ROCEPHINE [Concomitant]
     Active Substance: CEFTRIAXONE SODIUM
     Dosage: UNK
     Dates: start: 201507

REACTIONS (7)
  - Transaminases increased [Recovered/Resolved]
  - Rash generalised [Recovered/Resolved]
  - Epstein-Barr viraemia [Recovered/Resolved]
  - Drug hypersensitivity [Recovered/Resolved]
  - Eosinophilia [Recovered/Resolved]
  - Drug reaction with eosinophilia and systemic symptoms [Recovered/Resolved]
  - Hyperthermia [Recovered/Resolved]

NARRATIVE: CASE EVENT DATE: 2015
